FAERS Safety Report 14467984 (Version 3)
Quarter: 2018Q4

REPORT INFORMATION
  Report Type: Spontaneous
  Country: US (occurrence: US)
  Receive Date: 20180131
  Receipt Date: 20181226
  Transmission Date: 20190204
  Serious: No
  Sender: FDA-Public Use
  Company Number: US-PFIZER INC-2018039221

PATIENT
  Age: 62 Year
  Sex: Female
  Weight: 88 kg

DRUGS (3)
  1. LYRICA [Suspect]
     Active Substance: PREGABALIN
     Indication: PAIN
  2. LYRICA [Suspect]
     Active Substance: PREGABALIN
     Indication: HERPES ZOSTER
     Dosage: 300 MG, 2X/DAY
     Route: 048
     Dates: end: 20180125
  3. GAMMAPLEX [Concomitant]
     Active Substance: HUMAN IMMUNOGLOBULIN G
     Dosage: 250 MG, WEEKLY
     Route: 042

REACTIONS (6)
  - Intentional product misuse [Unknown]
  - Influenza [Recovering/Resolving]
  - Skin fissures [Unknown]
  - Malaise [Unknown]
  - Dermatitis [Unknown]
  - Rash [Unknown]

NARRATIVE: CASE EVENT DATE: 2018
